FAERS Safety Report 12103850 (Version 1)
Quarter: 2016Q1

REPORT INFORMATION
  Report Type: Spontaneous
  Country: US (occurrence: US)
  Receive Date: 20160223
  Receipt Date: 20160223
  Transmission Date: 20160526
  Serious: No
  Sender: FDA-Public Use
  Company Number: US-BIOGEN-2016BI00188806

PATIENT
  Sex: Female

DRUGS (2)
  1. BACLOFEN. [Concomitant]
     Active Substance: BACLOFEN
     Indication: PRODUCT USED FOR UNKNOWN INDICATION
  2. TYSABRI [Suspect]
     Active Substance: NATALIZUMAB
     Indication: MULTIPLE SCLEROSIS
     Dates: start: 20151117

REACTIONS (4)
  - Constipation [Not Recovered/Not Resolved]
  - Bladder disorder [Unknown]
  - Gastrointestinal disorder [Not Recovered/Not Resolved]
  - General symptom [Not Recovered/Not Resolved]
